FAERS Safety Report 4680929-X (Version None)
Quarter: 2005Q2

REPORT INFORMATION
  Report Type: 
  Country: None (occurrence: None)
  Receive Date: 20050601
  Receipt Date: 20050601
  Transmission Date: 20051028
  Serious: Yes (Death, Life-Threatening, Hospitalization)
  Sender: FDA-Public Use
  Company Number: None

PATIENT
  Age: 59 Year
  Sex: Female
  Weight: 65.7716 kg

DRUGS (6)
  1. TAXOTERE [Suspect]
     Indication: OVARIAN CANCER
     Dosage: 126 MG IV Q 3 WEEKS
     Route: 042
     Dates: start: 20050124
  2. CARBOPLATIN [Suspect]
     Indication: OVARIAN CANCER
     Dosage: 516 MG IV Q 3 WEEKS
     Route: 042
     Dates: start: 20050124
  3. VICODIN [Concomitant]
  4. ATIVAN [Concomitant]
  5. COMPAZINE [Concomitant]
  6. IBUPROFEN [Concomitant]

REACTIONS (27)
  - ABDOMINAL PAIN [None]
  - ABDOMINAL RIGIDITY [None]
  - ACUTE RESPIRATORY DISTRESS SYNDROME [None]
  - ALANINE AMINOTRANSFERASE INCREASED [None]
  - ASPARTATE AMINOTRANSFERASE INCREASED [None]
  - BLISTER [None]
  - BLOOD ALBUMIN DECREASED [None]
  - BLOOD CREATININE INCREASED [None]
  - CAECITIS [None]
  - CARBOHYDRATE ANTIGEN 125 INCREASED [None]
  - ERYTHEMA [None]
  - HAEMATOCRIT DECREASED [None]
  - HAEMOGLOBIN DECREASED [None]
  - LOSS OF CONSCIOUSNESS [None]
  - MULTI-ORGAN DISORDER [None]
  - NAUSEA [None]
  - NECROTISING FASCIITIS [None]
  - NEUTROPENIA [None]
  - OEDEMA [None]
  - OEDEMA PERIPHERAL [None]
  - OXYGEN SATURATION DECREASED [None]
  - PLATELET COUNT DECREASED [None]
  - PROTEIN TOTAL DECREASED [None]
  - PYREXIA [None]
  - SEPSIS [None]
  - VOMITING [None]
  - WHITE BLOOD CELL COUNT INCREASED [None]
